FAERS Safety Report 7978396-3 (Version None)
Quarter: 2011Q4

REPORT INFORMATION
  Report Type: 
  Country: None (occurrence: None)
  Receive Date: 20111205
  Receipt Date: 20111121
  Transmission Date: 20120403
  Serious: Yes (Disabling)
  Sender: FDA-Public Use
  Company Number: DSA_48232_2011

PATIENT
  Age: 48 Year
  Sex: Female

DRUGS (1)
  1. VENLAFAXINE [Suspect]
     Indication: PRODUCT USED FOR UNKNOWN INDICATION
     Dosage: (1 TIME; NOT THE PRESCRIBED AMOUNT), (DF)

REACTIONS (15)
  - OVERDOSE [None]
  - SPEECH DISORDER [None]
  - MENTAL DISORDER [None]
  - MOTOR DYSFUNCTION [None]
  - MOVEMENT DISORDER [None]
  - COMA [None]
  - APHASIA [None]
  - THINKING ABNORMAL [None]
  - COGNITIVE DISORDER [None]
  - ELECTROENCEPHALOGRAM ABNORMAL [None]
  - GAIT DISTURBANCE [None]
  - HYPERREFLEXIA [None]
  - LOSS OF CONSCIOUSNESS [None]
  - DISTURBANCE IN ATTENTION [None]
  - DISORIENTATION [None]
